FAERS Safety Report 20574724 (Version 2)
Quarter: 2022Q2

REPORT INFORMATION
  Report Type: Spontaneous
  Country: CA (occurrence: CA)
  Receive Date: 20220309
  Receipt Date: 20220616
  Transmission Date: 20220721
  Serious: Yes (Death, Other)
  Sender: FDA-Public Use
  Company Number: CA-SAMSUNG BIOEPIS-SB-2022-05503

PATIENT
  Age: 42 Year
  Sex: Male
  Weight: 123 kg

DRUGS (3)
  1. INFLIXIMAB [Suspect]
     Active Substance: INFLIXIMAB
     Indication: Colitis ulcerative
     Route: 042
  2. AZATHIOPRINE [Concomitant]
     Active Substance: AZATHIOPRINE
     Indication: Product used for unknown indication
     Dosage: UNKNOWN
     Route: 065
  3. MESALAMINE [Concomitant]
     Active Substance: MESALAMINE
     Indication: Product used for unknown indication
     Dosage: UNKNOWN
     Route: 065

REACTIONS (6)
  - Death [Fatal]
  - Condition aggravated [Fatal]
  - Weight increased [Fatal]
  - Inappropriate schedule of product administration [Fatal]
  - Product use issue [Fatal]
  - Off label use [Fatal]
